FAERS Safety Report 5252916-4 (Version None)
Quarter: 2007Q1

REPORT INFORMATION
  Report Type: 
  Country: None (occurrence: None)
  Receive Date: 20070227
  Receipt Date: 20070214
  Transmission Date: 20070707
  Serious: Yes (Hospitalization, Other)
  Sender: FDA-Public Use
  Company Number: GXKR2007GB01706

PATIENT
  Age: 66 Year
  Sex: Male
  Weight: 91 kg

DRUGS (7)
  1. IBUPROFEN [Suspect]
     Indication: ARTHRITIS
     Dosage: 400 MG, TID, ORAL
     Route: 048
     Dates: start: 20050628, end: 20061004
  2. WARFARIN SODIUM [Suspect]
     Dates: start: 20060901, end: 20061004
  3. WARFARIN SODIUM [Suspect]
     Dates: start: 20060901, end: 20061004
  4. CLONAZEPAM [Concomitant]
  5. LORAZEPAM [Concomitant]
  6. ACETAMINOPHEN [Concomitant]
  7. TRAMADOL HCL [Concomitant]

REACTIONS (5)
  - HAEMATOMA [None]
  - HAEMORRHAGE [None]
  - INTERNATIONAL NORMALISED RATIO INCREASED [None]
  - NERVE COMPRESSION [None]
  - PAIN [None]
